FAERS Safety Report 16961496 (Version 1)
Quarter: 2019Q4

REPORT INFORMATION
  Report Type: Spontaneous
  Country: US (occurrence: US)
  Receive Date: 20191024
  Receipt Date: 20191024
  Transmission Date: 20200122
  Serious: Yes (Other)
  Sender: FDA-Public Use
  Company Number: None

PATIENT
  Age: 17 Year
  Sex: Female
  Weight: 49.5 kg

DRUGS (3)
  1. DEPO-PROVERA [Suspect]
     Active Substance: MEDROXYPROGESTERONE ACETATE
     Indication: DYSMENORRHOEA
     Dosage: ?          QUANTITY:2 INJECTION(S);OTHER FREQUENCY:EVERY 12 WEEKS;?
     Route: 058
     Dates: start: 20190211, end: 20190722
  2. IRON [Concomitant]
     Active Substance: IRON
  3. ACETAMINOPHEN. [Concomitant]
     Active Substance: ACETAMINOPHEN

REACTIONS (1)
  - Depression [None]

NARRATIVE: CASE EVENT DATE: 20190415
